FAERS Safety Report 17414760 (Version 3)
Quarter: 2020Q1

REPORT INFORMATION
  Report Type: Spontaneous
  Country: GB (occurrence: GB)
  Receive Date: 20200213
  Receipt Date: 20200227
  Transmission Date: 20200409
  Serious: Yes (Hospitalization)
  Sender: FDA-Public Use
  Company Number: GB-IPSEN BIOPHARMACEUTICALS, INC.-2020-02963

PATIENT
  Age: 48 Year
  Sex: Female

DRUGS (7)
  1. AZZALURE [Suspect]
     Active Substance: BOTULINUM TOXIN TYPE A
     Indication: SKIN WRINKLING
     Dosage: 135 UNITS (GLABELLA: 50 SPEYWOOD UNITS, FRONTALIS: 15 SPEYWOOD UNITS AND ORBICULARIS OCULI: 70 SPEYW
     Route: 030
     Dates: start: 20200206, end: 20200206
  2. DOCUSATE [Concomitant]
     Active Substance: DOCUSATE
     Route: 065
  3. AZZALURE [Suspect]
     Active Substance: BOTULINUM TOXIN TYPE A
     Indication: SKIN WRINKLING
  4. AZZALURE [Suspect]
     Active Substance: BOTULINUM TOXIN TYPE A
     Indication: OFF LABEL USE
  5. FLUOXETINE [Concomitant]
     Active Substance: FLUOXETINE HYDROCHLORIDE
     Route: 065
  6. LANSOPRAZOLE. [Concomitant]
     Active Substance: LANSOPRAZOLE
     Route: 065
  7. AZZALURE [Suspect]
     Active Substance: BOTULINUM TOXIN TYPE A
     Indication: SKIN WRINKLING

REACTIONS (3)
  - Off label use [Unknown]
  - Prescribed overdose [Unknown]
  - Cellulitis [Unknown]

NARRATIVE: CASE EVENT DATE: 20200206
